FAERS Safety Report 5525826-2 (Version None)
Quarter: 2007Q4

REPORT INFORMATION
  Report Type: 
  Country: None (occurrence: None)
  Receive Date: 20071126
  Receipt Date: 20071114
  Transmission Date: 20080405
  Serious: Yes (Other)
  Sender: FDA-Public Use
  Company Number: AR-PFIZER INC-2007074306

PATIENT
  Sex: Male
  Weight: 70 kg

DRUGS (3)
  1. SUTENT [Suspect]
     Indication: RENAL CANCER METASTATIC
     Route: 048
  2. AMINO ACIDS [Concomitant]
     Route: 048
  3. MEGESTROL [Concomitant]
     Route: 048
     Dates: start: 20070701

REACTIONS (2)
  - ANAEMIA [None]
  - PERFORMANCE STATUS DECREASED [None]
